FAERS Safety Report 5134964-8 (Version None)
Quarter: 2006Q4

REPORT INFORMATION
  Report Type: 
  Country: None (occurrence: None)
  Receive Date: 20061019
  Receipt Date: 20061011
  Transmission Date: 20070319
  Serious: Yes (Hospitalization, Other)
  Sender: FDA-Public Use
  Company Number: 2006SP003470

PATIENT
  Age: 50 Year
  Sex: Female

DRUGS (4)
  1. PEG-INTRON [Suspect]
     Indication: HEPATITIS C
     Dosage: 120 MCG; QW; SC
     Route: 058
     Dates: start: 20060718, end: 20060911
  2. REBETOL [Suspect]
     Indication: HEPATITIS C
     Dosage: 1000 MG, QD; PO
     Route: 048
     Dates: start: 20060718, end: 20060911
  3. IBUPROFEN [Concomitant]
  4. NATALVIT [Concomitant]

REACTIONS (15)
  - ABNORMAL BEHAVIOUR [None]
  - ANGER [None]
  - ASTHENIA [None]
  - HEADACHE [None]
  - HOMICIDAL IDEATION [None]
  - HUNGER [None]
  - HYPERHIDROSIS [None]
  - HYPERTENSION [None]
  - HYPOTHYROIDISM [None]
  - JUDGEMENT IMPAIRED [None]
  - LYMPH GLAND INFECTION [None]
  - MOOD ALTERED [None]
  - SCREAMING [None]
  - SUICIDAL IDEATION [None]
  - VISUAL ACUITY REDUCED [None]
